FAERS Safety Report 19102152 (Version 1)
Quarter: 2021Q2

REPORT INFORMATION
  Report Type: Spontaneous
  Country: US (occurrence: US)
  Receive Date: 20210407
  Receipt Date: 20210407
  Transmission Date: 20210717
  Serious: No
  Sender: FDA-Public Use
  Company Number: US-SA-2021SA111946

PATIENT
  Age: 28 Year
  Sex: Male

DRUGS (2)
  1. DUPIXENT [Suspect]
     Active Substance: DUPILUMAB
     Indication: DERMATITIS ATOPIC
     Dosage: 600 MG, 1X (INJECT 2 SYRINGES SUBCUTANEOUSLY ON DAY 1/)
     Route: 058
     Dates: start: 20210319, end: 20210319
  2. DUPIXENT [Suspect]
     Active Substance: DUPILUMAB
     Dosage: 1 DF, QOW
     Route: 058
     Dates: start: 202103

REACTIONS (2)
  - Eye discharge [Unknown]
  - Sunburn [Unknown]

NARRATIVE: CASE EVENT DATE: 202103
